FAERS Safety Report 11614702 (Version 1)
Quarter: 2015Q4

REPORT INFORMATION
  Report Type: Spontaneous
  Country: US (occurrence: None)
  Receive Date: 20151008
  Receipt Date: 20151008
  Transmission Date: 20160304
  Serious: Yes (Hospitalization)
  Sender: FDA-Public Use
  Company Number: None

PATIENT
  Sex: Male

DRUGS (3)
  1. TRUVADA [Suspect]
     Active Substance: EMTRICITABINE\TENOFOVIR DISOPROXIL FUMARATE
     Indication: HIV INFECTION
     Route: 048
     Dates: start: 20131215
  2. KALETRA [Concomitant]
     Active Substance: LOPINAVIR\RITONAVIR
  3. FORTEO [Concomitant]
     Active Substance: TERIPARATIDE

REACTIONS (5)
  - Dyspnoea [None]
  - Vomiting [None]
  - Chest pain [None]
  - Enzyme abnormality [None]
  - Cough [None]

NARRATIVE: CASE EVENT DATE: 20150921
